FAERS Safety Report 12935658 (Version 3)
Quarter: 2016Q4

REPORT INFORMATION
  Report Type: Spontaneous
  Country: US (occurrence: US)
  Receive Date: 20161114
  Receipt Date: 20161215
  Transmission Date: 20170207
  Serious: Yes (Death, Hospitalization, Other)
  Sender: FDA-Public Use
  Company Number: US-009507513-1611USA003401

PATIENT
  Age: 46 Year
  Sex: Male
  Weight: 49 kg

DRUGS (3)
  1. KEYTRUDA [Suspect]
     Active Substance: PEMBROLIZUMAB
     Indication: SMALL CELL LUNG CANCER
     Dosage: 110 G, Q3W
     Route: 042
     Dates: start: 20160831
  2. KEYTRUDA [Suspect]
     Active Substance: PEMBROLIZUMAB
     Dosage: UNK
  3. KEYTRUDA [Suspect]
     Active Substance: PEMBROLIZUMAB
     Dosage: UNK UNK, Q3W
     Dates: start: 20160902, end: 20161017

REACTIONS (3)
  - Adverse event [Unknown]
  - Small cell lung cancer [Fatal]
  - Product use issue [Unknown]

NARRATIVE: CASE EVENT DATE: 2016
